FAERS Safety Report 5414924-X (Version None)
Quarter: 2007Q3

REPORT INFORMATION
  Report Type: 
  Country: None (occurrence: None)
  Receive Date: 20070813
  Receipt Date: 20070813
  Transmission Date: 20080115
  Serious: Yes (Other)
  Sender: FDA-Public Use
  Company Number: None

PATIENT
  Age: 60 Year
  Sex: Male
  Weight: 83.4619 kg

DRUGS (2)
  1. ERBITUX [Suspect]
     Indication: SKIN CANCER METASTATIC
     Dosage: 800 MG 1/30/06 1X IV   500 MG 3/1/06 1 X IV
     Route: 042
     Dates: start: 20060130
  2. ERBITUX [Suspect]
     Indication: TONGUE NEOPLASM MALIGNANT STAGE UNSPECIFIED
     Dosage: 800 MG 1/30/06 1X IV   500 MG 3/1/06 1 X IV
     Route: 042
     Dates: start: 20060130

REACTIONS (5)
  - NAUSEA [None]
  - RADIATION INJURY [None]
  - SKIN EXFOLIATION [None]
  - SKIN HAEMORRHAGE [None]
  - VOMITING [None]
